FAERS Safety Report 25859704 (Version 1)
Quarter: 2025Q3

REPORT INFORMATION
  Report Type: Spontaneous
  Country: US (occurrence: None)
  Receive Date: 20250926
  Receipt Date: 20250926
  Transmission Date: 20251020
  Serious: Yes (Other)
  Sender: FDA-CTU
  Company Number: None

PATIENT
  Age: 55 Year
  Sex: Female

DRUGS (2)
  1. CYANOCOBALAMIN\NALTREXONE\TOPIRAMATE [Suspect]
     Active Substance: CYANOCOBALAMIN\NALTREXONE\TOPIRAMATE
     Indication: Weight decreased
     Dosage: FREQUENCY : TWICE A DAY;?
     Route: 048
     Dates: start: 20250702, end: 20250719
  2. BUPROPION [Suspect]
     Active Substance: BUPROPION
     Dates: start: 20250702, end: 20250919

REACTIONS (3)
  - Headache [None]
  - Hypertension [None]
  - Dyspnoea [None]

NARRATIVE: CASE EVENT DATE: 20250719
